FAERS Safety Report 4501482-7 (Version None)
Quarter: 2004Q4

REPORT INFORMATION
  Report Type: 
  Country: None (occurrence: None)
  Receive Date: 20040928
  Receipt Date: 20040819
  Transmission Date: 20050328
  Serious: No
  Sender: FDA-Public Use
  Company Number: 04P-163-0271023-00

PATIENT
  Age: 47 Year
  Sex: Male
  Weight: 95.2554 kg

DRUGS (10)
  1. HUMIRA [Suspect]
     Indication: RHEUMATOID ARTHRITIS
     Dosage: 40 MG, 1 IN 2 WK, SUBCUTANEOUS
     Route: 058
     Dates: start: 20040630
  2. HYDROCHLOROTHIAZIDE [Concomitant]
  3. SYNTHROID [Concomitant]
  4. ZETIA [Concomitant]
  5. METOPROLOL TARTRATE [Concomitant]
  6. INHALER [Concomitant]
  7. PREDNISONE [Concomitant]
  8. SULFASALAZINE [Concomitant]
  9. HYDROXYCHLOROQUINE PHOSPHATE [Concomitant]
  10. METHOTREXATE SODIUM [Concomitant]

REACTIONS (2)
  - CHEST DISCOMFORT [None]
  - COUGH [None]
